FAERS Safety Report 6124413-5 (Version None)
Quarter: 2009Q1

REPORT INFORMATION
  Report Type: 
  Country: None (occurrence: None)
  Receive Date: 20090319
  Receipt Date: 20090316
  Transmission Date: 20090719
  Serious: Yes (Death, Other)
  Sender: FDA-Public Use
  Company Number: US-CELGENEUS-163-21880-09021456

PATIENT
  Sex: Male

DRUGS (2)
  1. REVLIMID [Suspect]
     Indication: MULTIPLE MYELOMA
     Route: 048
     Dates: start: 20070507, end: 20080601
  2. REVLIMID [Suspect]
     Route: 048
     Dates: start: 20070222

REACTIONS (5)
  - ANAEMIA [None]
  - MULTIPLE MYELOMA [None]
  - OEDEMA [None]
  - RENAL FAILURE [None]
  - THROMBOCYTOPENIA [None]
